FAERS Safety Report 16646574 (Version 1)
Quarter: 2019Q3

REPORT INFORMATION
  Report Type: Spontaneous
  Country: GB (occurrence: GB)
  Receive Date: 20190730
  Receipt Date: 20190730
  Transmission Date: 20191004
  Serious: Yes (Other)
  Sender: FDA-Public Use
  Company Number: GB-SHILPA MEDICARE LIMITED-SML-GB-2019-00167

PATIENT
  Age: 64 Year
  Sex: Male

DRUGS (2)
  1. IMATINIB, UNKNOWN [Suspect]
     Active Substance: IMATINIB
     Indication: CHEMOTHERAPY
     Dosage: CUMULATIVE DOSE TO 1ST REACTION IS 10800 MG
     Route: 048
     Dates: start: 20190502, end: 20190607
  2. IMATINIB, UNKNOWN [Suspect]
     Active Substance: IMATINIB
     Indication: CHEMOTHERAPY
     Dosage: CUMULATIVE DOSE TO 1ST REACTION IS 10800 MG
     Route: 048
     Dates: start: 20190502, end: 20190607

REACTIONS (1)
  - Oedema peripheral [Recovered/Resolved]

NARRATIVE: CASE EVENT DATE: 20190529
